FAERS Safety Report 8388443-5 (Version None)
Quarter: 2012Q2

REPORT INFORMATION
  Report Type: 
  Country: None (occurrence: None)
  Receive Date: 20120525
  Receipt Date: 20120514
  Transmission Date: 20120825
  Serious: Yes (Other)
  Sender: FDA-Public Use
  Company Number: DE-ELI_LILLY_AND_COMPANY-DE201203007747

PATIENT
  Age: 27 Year
  Sex: Female

DRUGS (10)
  1. PROMETHAZINE [Concomitant]
     Dosage: UNK, PRN
     Dates: start: 20120210
  2. MAGNESIUM-DIASPORAL [Concomitant]
     Dosage: 2 DF, QD
     Dates: start: 20120120
  3. IBUPROFEN [Concomitant]
     Dosage: 1200 MG, UNKNOWN
  4. IBUPROFEN [Concomitant]
     Dosage: 400 MG, PRN
     Dates: start: 20120305
  5. IBUPROFEN [Concomitant]
     Dosage: 800 MG, SINGLE
     Dates: start: 20120306
  6. ACC ACUTE [Concomitant]
     Dosage: 1 DF, QD
  7. MUCOFALK [Concomitant]
     Dosage: UNK, QD
     Dates: start: 20120123
  8. CYMBALTA [Suspect]
     Dosage: 60 MG, QD
     Route: 048
     Dates: start: 20120127
  9. DIPYRONE TAB [Concomitant]
     Dosage: UNK, UNKNOWN
  10. DEPO-PROVERA [Concomitant]
     Dosage: 150 MG, UNK

REACTIONS (8)
  - WHITE BLOOD CELL COUNT INCREASED [None]
  - PANCREATITIS [None]
  - ALANINE AMINOTRANSFERASE INCREASED [None]
  - GLOMERULAR FILTRATION RATE DECREASED [None]
  - GAMMA-GLUTAMYLTRANSFERASE INCREASED [None]
  - ACTIVATED PARTIAL THROMBOPLASTIN TIME SHORTENED [None]
  - HIGH DENSITY LIPOPROTEIN DECREASED [None]
  - C-REACTIVE PROTEIN INCREASED [None]
